FAERS Safety Report 25110600 (Version 1)
Quarter: 2025Q1

REPORT INFORMATION
  Report Type: Spontaneous
  Country: FR (occurrence: FR)
  Receive Date: 20250324
  Receipt Date: 20250324
  Transmission Date: 20250408
  Serious: Yes (Hospitalization, Other)
  Sender: Haleon PLC
  Company Number: None

PATIENT
  Age: 79 Year
  Sex: Male
  Weight: 110 kg

DRUGS (9)
  1. DICLOFENAC [Suspect]
     Active Substance: DICLOFENAC
     Indication: Pain
     Route: 048
     Dates: start: 20240627, end: 20240730
  2. MORPHINE SULFATE [Concomitant]
     Active Substance: MORPHINE SULFATE
     Indication: Product used for unknown indication
  3. CHOLECALCIFEROL [Concomitant]
     Active Substance: CHOLECALCIFEROL
     Indication: Product used for unknown indication
  4. ALFUZOSIN HYDROCHLORIDE [Concomitant]
     Active Substance: ALFUZOSIN HYDROCHLORIDE
     Indication: Product used for unknown indication
  5. SKENAN [Suspect]
     Active Substance: MORPHINE SULFATE
     Indication: Pain
     Dosage: STRENGTH- 10MG, FORMULATION- PROLONGED RELEASE MICROGRANULES IN CAPSULE
     Route: 048
     Dates: start: 20240627, end: 20240730
  6. TRAMADOL HYDROCHLORIDE [Suspect]
     Active Substance: TRAMADOL HYDROCHLORIDE
     Indication: Pain
     Route: 048
     Dates: start: 20240715, end: 20240730
  7. PANTOPRAZOLE [Suspect]
     Active Substance: PANTOPRAZOLE
     Indication: Pain
     Route: 048
     Dates: start: 20240715, end: 20240730
  8. NAPROXEN [Suspect]
     Active Substance: NAPROXEN
     Indication: Pain
     Route: 048
     Dates: start: 20240715, end: 20240730
  9. ALLOPURINOL [Concomitant]
     Active Substance: ALLOPURINOL
     Indication: Product used for unknown indication

REACTIONS (1)
  - Hepatitis cholestatic [Recovering/Resolving]

NARRATIVE: CASE EVENT DATE: 20240730
